FAERS Safety Report 6064379-X (Version None)
Quarter: 2009Q1

REPORT INFORMATION
  Report Type: 
  Country: None (occurrence: None)
  Receive Date: 20090203
  Receipt Date: 20090203
  Transmission Date: 20090719
  Serious: Yes (Hospitalization, Other)
  Sender: FDA-Public Use
  Company Number: None

PATIENT
  Age: 83 Year
  Sex: Female
  Weight: 46.2669 kg

DRUGS (4)
  1. CARVEDILOL [Suspect]
     Indication: SYSTOLIC HYPERTENSION
     Dates: start: 20081219, end: 20090125
  2. HYDROCHLOROTHIAZIDE [Concomitant]
  3. COZAAR [Concomitant]
  4. FOSSAMAX [Concomitant]

REACTIONS (6)
  - BRADYCARDIA [None]
  - CHEST DISCOMFORT [None]
  - EYE ROLLING [None]
  - FALL [None]
  - FEELING ABNORMAL [None]
  - HYPOTENSION [None]
